FAERS Safety Report 6841417-5 (Version None)
Quarter: 2010Q3

REPORT INFORMATION
  Report Type: 
  Country: None (occurrence: None)
  Receive Date: 20100714
  Receipt Date: 20070706
  Transmission Date: 20110219
  Serious: No
  Sender: FDA-Public Use
  Company Number: US-PFIZER INC-2007057553

PATIENT
  Sex: Female
  Weight: 131.8 kg

DRUGS (5)
  1. CHANTIX [Suspect]
     Indication: SMOKING CESSATION THERAPY
     Dates: start: 20070601
  2. HYZAAR [Concomitant]
  3. ALLEGRA [Concomitant]
  4. MELOXICAM [Concomitant]
  5. MULTI-VITAMINS [Concomitant]

REACTIONS (3)
  - ABNORMAL DREAMS [None]
  - IRRITABILITY [None]
  - RESTLESSNESS [None]
